FAERS Safety Report 24464480 (Version 1)
Quarter: 2024Q4

REPORT INFORMATION
  Report Type: Report from Study
  Country: US (occurrence: US)
  Receive Date: 20241018
  Receipt Date: 20241018
  Transmission Date: 20250114
  Serious: No
  Sender: ROCHE
  Company Number: US-ROCHE-3502115

PATIENT
  Age: 86 Year
  Sex: Male
  Weight: 90.72 kg

DRUGS (2)
  1. XOLAIR [Suspect]
     Active Substance: OMALIZUMAB
     Indication: Idiopathic urticaria
     Route: 058
     Dates: start: 202008
  2. XOLAIR [Suspect]
     Active Substance: OMALIZUMAB
     Dosage: NO
     Route: 058

REACTIONS (2)
  - Urticaria [Recovered/Resolved]
  - Off label use [Unknown]

NARRATIVE: CASE EVENT DATE: 20231219
